FAERS Safety Report 16051784 (Version 2)
Quarter: 2019Q2

REPORT INFORMATION
  Report Type: Report from Study
  Country: GB (occurrence: GB)
  Receive Date: 20190308
  Receipt Date: 20190401
  Transmission Date: 20190711
  Serious: Yes (Death, Hospitalization)
  Sender: FDA-Public Use
  Company Number: GB-MYLANLABS-2019M1010933

PATIENT
  Age: 87 Year
  Sex: Female

DRUGS (22)
  1. AFLIBERCEPT [Suspect]
     Active Substance: AFLIBERCEPT
     Dosage: 433 MG, QCY
     Route: 042
     Dates: start: 20180531, end: 20180531
  2. METOPROLOL. [Concomitant]
     Active Substance: METOPROLOL
     Indication: HYPERTENSION
     Dosage: 25 MG, QD
     Route: 048
  3. ASPIRIN. [Concomitant]
     Active Substance: ASPIRIN
     Dosage: 75 MG, QD
     Route: 048
     Dates: start: 2015
  4. GABAPENTIN. [Concomitant]
     Active Substance: GABAPENTIN
     Indication: ANALGESIC THERAPY
     Dosage: 100 MILLIGRAM, TID
     Route: 048
     Dates: start: 2018
  5. CAPECITABINE. [Suspect]
     Active Substance: CAPECITABINE
     Indication: COLORECTAL CANCER METASTATIC
     Dosage: 1300 MILLIGRAM, BID
     Route: 048
     Dates: start: 20180531, end: 20180711
  6. AMLODIPINE [Concomitant]
     Active Substance: AMLODIPINE BESYLATE
     Indication: HYPERTENSION
     Dosage: 5 MG, QD
     Route: 048
     Dates: start: 2015
  7. BUPRENORPHINE. [Concomitant]
     Active Substance: BUPRENORPHINE
     Indication: ARTHRALGIA
     Dosage: 5 MICROGRAM (5 UG)
     Route: 062
  8. SIMVASTIN [Concomitant]
     Active Substance: SIMVASTATIN
     Indication: HYPERCHOLESTEROLAEMIA
     Dosage: 20 MG, QD
     Route: 048
     Dates: start: 2016
  9. HALOPERIDOL. [Concomitant]
     Active Substance: HALOPERIDOL
     Indication: NAUSEA
     Dosage: UNK
     Route: 048
     Dates: start: 20180719
  10. HALOPERIDOL. [Concomitant]
     Active Substance: HALOPERIDOL
     Dosage: 0.5 MILLIGRAM
     Route: 048
     Dates: start: 20180713, end: 20180719
  11. RALVO [Concomitant]
     Dosage: 700 MG, QD
     Route: 062
     Dates: start: 201805
  12. COSOPT [Concomitant]
     Active Substance: DORZOLAMIDE HYDROCHLORIDE\TIMOLOL MALEATE
     Indication: GLAUCOMA
     Dosage: 1000 MG, QD
     Route: 031
  13. LACRILUBE [Concomitant]
     Indication: GLAUCOMA
     Dosage: UNK, QD
     Route: 031
     Dates: start: 20180620
  14. ONDANSETRON                        /00955302/ [Concomitant]
     Active Substance: ONDANSETRON HYDROCHLORIDE
     Indication: PROPHYLAXIS
     Dosage: 8 MILLIGRAM, PRN
     Route: 048
     Dates: start: 20180629, end: 201807
  15. LIDOCAINE. [Concomitant]
     Active Substance: LIDOCAINE
     Indication: ANALGESIC THERAPY
     Dosage: UNK
     Route: 062
     Dates: start: 2018
  16. BIMATOPROST. [Concomitant]
     Active Substance: BIMATOPROST
     Indication: GLAUCOMA
     Dosage: 5 MG, QD
     Route: 031
  17. RAMIPRIL. [Concomitant]
     Active Substance: RAMIPRIL
     Indication: HYPERTENSION
     Dosage: 10 MILLIGRAM, QD
     Route: 048
     Dates: start: 2017
  18. HYCOSAN [Concomitant]
     Dosage: UNK
     Route: 031
     Dates: start: 20180626
  19. AFLIBERCEPT [Suspect]
     Active Substance: AFLIBERCEPT
     Indication: COLORECTAL CANCER METASTATIC
     Dosage: 433 MILLIGRAM, CYCLE
     Route: 042
     Dates: start: 20180628, end: 20180628
  20. DOMPERIDONE [Concomitant]
     Active Substance: DOMPERIDONE
     Dosage: 10 MILLIGRAM, TID, PRN
     Route: 048
     Dates: start: 20180531
  21. LOPERAMIDE [Concomitant]
     Active Substance: LOPERAMIDE
     Indication: DIARRHOEA
     Dosage: 2 MILLIGRAM, PRN
     Route: 048
  22. METOCHLOPRAMIDE [Concomitant]
     Active Substance: METOCLOPRAMIDE HYDROCHLORIDE
     Indication: NAUSEA
     Dosage: 10 MILLIGRAM, TID, PRN
     Route: 048
     Dates: start: 2018

REACTIONS (4)
  - Respiratory failure [Fatal]
  - Colitis [Not Recovered/Not Resolved]
  - Respiratory acidosis [Fatal]
  - Sleep apnoea syndrome [Fatal]

NARRATIVE: CASE EVENT DATE: 20180711
